FAERS Safety Report 7508515-4 (Version None)
Quarter: 2011Q2

REPORT INFORMATION
  Report Type: 
  Country: None (occurrence: None)
  Receive Date: 20110527
  Receipt Date: 20110524
  Transmission Date: 20111010
  Serious: Yes (Death)
  Sender: FDA-Public Use
  Company Number: JP-PFIZER INC-2011079663

PATIENT
  Age: 76 Year
  Sex: Male
  Weight: 62.8 kg

DRUGS (12)
  1. PLAVIX [Concomitant]
     Indication: ANGINA PECTORIS
     Dosage: UNK
     Route: 048
     Dates: end: 20101224
  2. OXYGEN [Concomitant]
  3. LIPITOR [Concomitant]
     Indication: HYPERLIPIDAEMIA
     Dosage: UNK
     Route: 048
     Dates: end: 20101224
  4. ALLELOCK [Concomitant]
     Indication: DERMATITIS
     Dosage: UNK
     Route: 048
     Dates: end: 20101224
  5. SILDENAFIL CITRATE [Suspect]
     Dosage: 60 MG/DAY
     Dates: start: 20100916, end: 20101224
  6. SILDENAFIL CITRATE [Suspect]
     Indication: PULMONARY ARTERIAL HYPERTENSION
     Dosage: 20 MG, 1X/DAY
     Dates: start: 20100915
  7. ASPIRIN [Concomitant]
     Indication: ANGINA PECTORIS
     Dosage: UNK
     Route: 048
     Dates: end: 20101224
  8. LASIX [Concomitant]
     Indication: CARDIAC FAILURE
     Dosage: UNK
     Route: 048
     Dates: end: 20101224
  9. ALDACTONE [Concomitant]
     Indication: CARDIAC FAILURE
     Dosage: UNK
     Route: 048
     Dates: end: 20101224
  10. DIGOXIN [Concomitant]
     Indication: CARDIAC FAILURE
     Dosage: UNK
     Route: 048
     Dates: start: 20100929, end: 20101224
  11. RABEPRAZOLE SODIUM [Concomitant]
     Indication: GASTRIC ULCER
     Dosage: UNK
     Route: 048
     Dates: end: 20101224
  12. CARVEDILOL [Concomitant]
     Indication: CARDIAC FAILURE
     Dosage: UNK
     Route: 048
     Dates: end: 20101224

REACTIONS (1)
  - UMBILICAL HERNIA, OBSTRUCTIVE [None]
